FAERS Safety Report 23559980 (Version 4)
Quarter: 2024Q1

REPORT INFORMATION
  Report Type: Spontaneous
  Country: JP (occurrence: JP)
  Receive Date: 20240223
  Receipt Date: 20240301
  Transmission Date: 20240409
  Serious: Yes (Other)
  Sender: FDA-Public Use
  Company Number: JP-MLMSERVICE-20240214-4831972-1

PATIENT
  Age: 56 Year
  Sex: Female

DRUGS (3)
  1. OXALIPLATIN [Suspect]
     Active Substance: OXALIPLATIN
     Indication: Rectal cancer
     Dosage: 130 MG/M2/INTRAVENOUSLY DRIP INFUSED ON DAY 1
     Route: 042
  2. CAPECITABINE [Suspect]
     Active Substance: CAPECITABINE
     Indication: Rectal cancer
     Dosage: 2400 MG WAS GIVEN ORALLY FROM DAY 1 TO 14
     Route: 048
  3. CETUXIMAB [Suspect]
     Active Substance: CETUXIMAB
     Indication: Rectal cancer
     Dosage: 400 MG/M INTRAVENOUSLY DRIP INFUSED ON DAY 1

REACTIONS (3)
  - Cytopenia [Unknown]
  - Neutropenia [Unknown]
  - Skin injury [Unknown]
